FAERS Safety Report 4676283-X (Version None)
Quarter: 2005Q2

REPORT INFORMATION
  Report Type: 
  Country: None (occurrence: None)
  Receive Date: 20050527
  Receipt Date: 20050215
  Transmission Date: 20051028
  Serious: No
  Sender: FDA-Public Use
  Company Number: US-GLAXOSMITHKLINE-A0545678A

PATIENT
  Age: 41 Year
  Sex: Female

DRUGS (4)
  1. WELLBUTRIN XL [Suspect]
     Indication: DEPRESSION
     Dosage: 300MG PER DAY
     Route: 048
     Dates: start: 20050202
  2. TOPROL-XL [Concomitant]
  3. CLONAZEPAM [Concomitant]
  4. ORTHO TRI-CYCLEN [Concomitant]

REACTIONS (3)
  - DIZZINESS [None]
  - MUSCLE RIGIDITY [None]
  - SUFFOCATION FEELING [None]
